FAERS Safety Report 6181489-7 (Version None)
Quarter: 2009Q2

REPORT INFORMATION
  Report Type: 
  Country: None (occurrence: None)
  Receive Date: 20090501
  Receipt Date: 20090416
  Transmission Date: 20091009
  Serious: Yes (Hospitalization)
  Sender: FDA-Public Use
  Company Number: 1000005945

PATIENT
  Sex: Male

DRUGS (5)
  1. ESCITALOPRAM [Suspect]
     Dosage: 60 MG (60 MG, 1IN 1 D)
     Dates: start: 20080101, end: 20081001
  2. RISPERDAL [Concomitant]
  3. TIAPRID [Concomitant]
  4. TRAMADOL HCL [Concomitant]
  5. EUNERPAN [Concomitant]

REACTIONS (6)
  - GENERAL PHYSICAL HEALTH DETERIORATION [None]
  - OVERDOSE [None]
  - SUICIDAL IDEATION [None]
  - SUICIDE ATTEMPT [None]
  - UNRESPONSIVE TO STIMULI [None]
  - WITHDRAWAL SYNDROME [None]
